FAERS Safety Report 18759484 (Version 6)
Quarter: 2021Q4

REPORT INFORMATION
  Report Type: Spontaneous
  Country: US (occurrence: US)
  Receive Date: 20210119
  Receipt Date: 20211004
  Transmission Date: 20220303
  Serious: No
  Sender: FDA-Public Use
  Company Number: US-PFIZER INC-2021033091

PATIENT
  Age: 72 Year
  Sex: Female

DRUGS (3)
  1. IBRANCE [Suspect]
     Active Substance: PALBOCICLIB
     Indication: Breast cancer female
     Dosage: 75 MG
  2. IBRANCE [Suspect]
     Active Substance: PALBOCICLIB
     Dosage: 100 MG
  3. COVID-19 VACCINE [Concomitant]
     Dosage: UNK
     Dates: start: 20210401, end: 20210401

REACTIONS (6)
  - Neoplasm progression [Unknown]
  - Feeling abnormal [Unknown]
  - Nausea [Unknown]
  - Emotional disorder [Unknown]
  - Hypoacusis [Unknown]
  - Illness [Unknown]
